FAERS Safety Report 11192452 (Version 3)
Quarter: 2015Q3

REPORT INFORMATION
  Report Type: Spontaneous
  Country: US (occurrence: US)
  Receive Date: 20150616
  Receipt Date: 20150705
  Transmission Date: 20151125
  Serious: Yes (Hospitalization)
  Sender: FDA-Public Use
  Company Number: US-009507513-1506USA004692

PATIENT
  Age: 49 Year
  Sex: Male
  Weight: 74.83 kg

DRUGS (2)
  1. DULERA [Suspect]
     Active Substance: FORMOTEROL FUMARATE DIHYDRATE\MOMETASONE FUROATE
     Indication: ASTHMA
     Dosage: STRENGTH: 100/5 (UNIT UNKNOWN), 1 PUFF, TWICE A DAY
     Route: 055
     Dates: start: 20140709, end: 20140716
  2. DULERA [Suspect]
     Active Substance: FORMOTEROL FUMARATE DIHYDRATE\MOMETASONE FUROATE
     Dosage: STRENGTH: 100/5 (UNIT UNKNOWN), 1 PUFF TWICE A DAY
     Route: 055
     Dates: start: 20140717, end: 20140719

REACTIONS (16)
  - Musculoskeletal stiffness [Recovering/Resolving]
  - Pain in extremity [Recovering/Resolving]
  - Neck pain [Recovering/Resolving]
  - Dysphonia [Recovering/Resolving]
  - Feeling abnormal [Recovering/Resolving]
  - Headache [Recovering/Resolving]
  - Tremor [Recovering/Resolving]
  - Dysphagia [Recovering/Resolving]
  - Nervousness [Recovering/Resolving]
  - Anxiety [Recovering/Resolving]
  - Chest discomfort [Recovering/Resolving]
  - Cold sweat [Recovering/Resolving]
  - Feeling jittery [Recovering/Resolving]
  - Device malfunction [Recovering/Resolving]
  - Arthralgia [Recovering/Resolving]
  - Palpitations [Recovering/Resolving]

NARRATIVE: CASE EVENT DATE: 20140716
